FAERS Safety Report 23953967 (Version 1)
Quarter: 2024Q2

REPORT INFORMATION
  Report Type: Other
  Country: CA (occurrence: None)
  Receive Date: 20240609
  Receipt Date: 20240609
  Transmission Date: 20240716
  Serious: Yes (Hospitalization)
  Sender: FDA-Public Use
  Company Number: CA-ROCHE-3575630

PATIENT
  Age: 77 Year
  Sex: Female
  Weight: 83.5 kg

DRUGS (13)
  1. ACTEMRA [Suspect]
     Active Substance: TOCILIZUMAB
     Indication: Rheumatoid arthritis
     Dosage: DRUG DOSE FIRST ADMINISTERED IS 600 MG MILLIGRAM(S)
     Route: 042
     Dates: start: 20140626, end: 20230404
  2. ACTEMRA [Suspect]
     Active Substance: TOCILIZUMAB
     Dosage: DRUG DOSE FIRST ADMINISTERED IS UNKNOWN ?MOREDOSAGEINFO IS NO PIRS RECEIVED
     Route: 042
     Dates: start: 20230926
  3. AMLODIPINE [Concomitant]
     Active Substance: AMLODIPINE BESYLATE
  4. ARTHROTEC [Concomitant]
     Active Substance: DICLOFENAC SODIUM\MISOPROSTOL
  5. FOLIC ACID [Concomitant]
     Active Substance: FOLIC ACID
  6. LEVOTHYROXINE [Concomitant]
     Active Substance: LEVOTHYROXINE\LEVOTHYROXINE SODIUM
  7. METHOTREXATE [Concomitant]
     Active Substance: METHOTREXATE
  8. NOVOGESIC [Concomitant]
  9. RABEPRAZOLE [Concomitant]
     Active Substance: RABEPRAZOLE
  10. SULFASALAZINE [Concomitant]
     Active Substance: SULFASALAZINE
  11. SYNTHROID [Concomitant]
     Active Substance: LEVOTHYROXINE SODIUM
  12. TRANDOLAPRIL [Concomitant]
     Active Substance: TRANDOLAPRIL
  13. TYLENOL 3 (UNK INGREDIENTS) [Concomitant]

REACTIONS (2)
  - Weight increased [Unknown]
  - Localised infection [Recovered/Resolved]

NARRATIVE: CASE EVENT DATE: 20240511
